FAERS Safety Report 5086057-6 (Version None)
Quarter: 2006Q3

REPORT INFORMATION
  Report Type: 
  Country: None (occurrence: None)
  Receive Date: 20060817
  Receipt Date: 20060802
  Transmission Date: 20061208
  Serious: Yes (Other)
  Sender: FDA-Public Use
  Company Number: 111805ISR

PATIENT
  Age: 44 Year
  Sex: Female

DRUGS (2)
  1. PREDNISOLONE [Suspect]
     Indication: ANAEMIA HAEMOLYTIC AUTOIMMUNE
  2. METHYLPREDNISOLONE [Suspect]
     Indication: ANAEMIA HAEMOLYTIC AUTOIMMUNE
     Dosage: INTRAVENOUS (NOS)
     Route: 042

REACTIONS (7)
  - ASTHENIA [None]
  - BRAIN ABSCESS [None]
  - DISORIENTATION [None]
  - FACIAL PALSY [None]
  - HEMIPLEGIA [None]
  - NOCARDIOSIS [None]
  - PLEURAL EFFUSION [None]
